FAERS Safety Report 8272808 (Version 2)
Quarter: 2012Q4

REPORT INFORMATION
  Report Type: Report from Study
  Country: JP (occurrence: JP)
  Receive Date: 20111202
  Receipt Date: 20120928
  Transmission Date: 20130627
  Serious: Yes (Other)
  Sender: FDA-Public Use
  Company Number: PHHY2011JP13462

PATIENT
  Age: 56 Year
  Sex: Male

DRUGS (9)
  1. AMN107 [Suspect]
     Indication: CHRONIC MYELOID LEUKAEMIA
     Dosage: 800 mg, UNK
     Route: 048
     Dates: start: 20090919, end: 20091003
  2. AMN107 [Suspect]
     Dosage: 200 mg, UNK
     Route: 048
     Dates: start: 20091026, end: 20091115
  3. AMN107 [Suspect]
     Dosage: 400 mg, UNK
     Route: 048
     Dates: start: 20091116, end: 20100104
  4. AMN107 [Suspect]
     Dosage: 800 mg, UNK
     Route: 048
     Dates: start: 20100105, end: 20100228
  5. AMN107 [Suspect]
     Dosage: 200 mg, UNK
     Route: 048
     Dates: start: 20100315, end: 20100328
  6. AMN107 [Suspect]
     Dosage: 400 mg, UNK
     Route: 048
     Dates: start: 20100329, end: 20100509
  7. AMN107 [Suspect]
     Dosage: 600 mg, UNK
     Route: 048
     Dates: start: 20100510, end: 20100728
  8. AMN107 [Suspect]
     Dosage: 800 mg, UNK
     Route: 048
     Dates: start: 20100729, end: 20100809
  9. AMN107 [Suspect]
     Dosage: 600 mg, UNK
     Route: 048
     Dates: start: 20100811

REACTIONS (1)
  - Blood bilirubin increased [Not Recovered/Not Resolved]
